FAERS Safety Report 6139482-6 (Version None)
Quarter: 2009Q2

REPORT INFORMATION
  Report Type: 
  Country: None (occurrence: None)
  Receive Date: 20090401
  Receipt Date: 20090324
  Transmission Date: 20091009
  Serious: Yes (Hospitalization, Other)
  Sender: FDA-Public Use
  Company Number: CA-BAYER-200916450NA

PATIENT
  Age: 63 Year
  Sex: Male
  Weight: 87 kg

DRUGS (10)
  1. SORAFENIB [Suspect]
     Indication: RENAL CELL CARCINOMA
     Dosage: TOTAL DAILY DOSE: 400 MG  UNIT DOSE: 200 MG
     Route: 048
     Dates: start: 20090310
  2. SORAFENIB [Suspect]
     Dosage: TOTAL DAILY DOSE: 400 MG  UNIT DOSE: 200 MG
     Route: 048
     Dates: start: 20090304, end: 20090305
  3. SORAFENIB [Suspect]
     Dosage: TOTAL DAILY DOSE: 400 MG  UNIT DOSE: 200 MG
     Route: 048
     Dates: start: 20090205, end: 20090303
  4. CLINDAMYCIN HCL [Concomitant]
     Indication: TOOTH INFECTION
     Dates: start: 20090225, end: 20090226
  5. CHOLESTYRAMINE [Concomitant]
     Indication: DIARRHOEA
     Dosage: TOTAL DAILY DOSE: 4 G
     Dates: start: 20090305, end: 20090312
  6. CALCITRIOL [Concomitant]
     Indication: HYPOCALCAEMIA
     Dates: start: 20090303
  7. CALCIUM CARBONATE [Concomitant]
     Indication: HYPOCALCAEMIA
     Dosage: TOTAL DAILY DOSE: 500 MG
     Dates: start: 20090303
  8. INNOHEP [Concomitant]
     Indication: THROMBOSIS
     Dates: start: 20080501
  9. STEMETIL [Concomitant]
     Indication: NAUSEA
     Dates: start: 20090224, end: 20090225
  10. ONDANSETRON [Concomitant]
     Indication: NAUSEA
     Dates: start: 20090226

REACTIONS (4)
  - DEHYDRATION [None]
  - DIARRHOEA [None]
  - HYPOCALCAEMIA [None]
  - RENAL FAILURE ACUTE [None]
